FAERS Safety Report 9149104 (Version 2)
Quarter: 2013Q2

REPORT INFORMATION
  Report Type: Spontaneous
  Country: US (occurrence: US)
  Receive Date: 20130308
  Receipt Date: 20130422
  Transmission Date: 20140414
  Serious: Yes (Other)
  Sender: FDA-Public Use
  Company Number: US-PFIZER INC-2013079485

PATIENT
  Age: 41 Year
  Sex: Female
  Weight: 120 kg

DRUGS (4)
  1. LYRICA [Suspect]
     Indication: FIBROMYALGIA
     Dosage: 150 MG, 2X/DAY
     Dates: start: 201205
  2. FLEXERIL [Concomitant]
     Dosage: UNK
  3. MOBIC [Concomitant]
     Dosage: UNK
  4. HYDROCODONE [Concomitant]
     Dosage: UNK

REACTIONS (2)
  - Fall [Unknown]
  - Ankle fracture [Unknown]
